FAERS Safety Report 4699424-7 (Version None)
Quarter: 2005Q2

REPORT INFORMATION
  Report Type: 
  Country: None (occurrence: None)
  Receive Date: 20050621
  Receipt Date: 20050518
  Transmission Date: 20051028
  Serious: Yes (Other)
  Sender: FDA-Public Use
  Company Number: ENTC2005-0139

PATIENT
  Age: 72 Year
  Sex: Female

DRUGS (5)
  1. STALEVO 100 [Suspect]
     Indication: PARKINSON'S DISEASE
     Dosage: 100/25/200 MG TID
     Route: 048
     Dates: start: 20041015, end: 20050421
  2. NOOTROPYL [Concomitant]
  3. COMBIVENT [Concomitant]
  4. TEMESTA [Concomitant]
  5. DAFALGAN [Concomitant]

REACTIONS (4)
  - ATRIOVENTRICULAR BLOCK [None]
  - CARDIAC FAILURE [None]
  - CARDIOMYOPATHY [None]
  - MITRAL VALVE INCOMPETENCE [None]
